FAERS Safety Report 16929998 (Version 1)
Quarter: 2019Q4

REPORT INFORMATION
  Report Type: Report from Study
  Country: US (occurrence: US)
  Receive Date: 20191017
  Receipt Date: 20191017
  Transmission Date: 20200122
  Serious: Yes (Hospitalization)
  Sender: FDA-Public Use
  Company Number: US-EISAI MEDICAL RESEARCH-EC-2018-037289

PATIENT
  Sex: Male
  Weight: 81.6 kg

DRUGS (31)
  1. POLYETHYLENE GLYCOL [Concomitant]
     Active Substance: POLYETHYLENE GLYCOLS
  2. MINOCYCLINE [Concomitant]
     Active Substance: MINOCYCLINE HYDROCHLORIDE
  3. LENVIMA [Suspect]
     Active Substance: LENVATINIB
     Indication: MALIGNANT NEOPLASM PROGRESSION
     Route: 048
     Dates: start: 2018, end: 2018
  4. XGEVA [Concomitant]
     Active Substance: DENOSUMAB
  5. PAIN RELIEF NOS [Concomitant]
     Active Substance: CAMPHOR (SYNTHETIC)\LEVOMENTHOL\MENTHYL SALICYLATE OR CAMPHOR (SYNTHETIC)\MENTHOL\MENTHYL SALICYLATE OR MENTHOL\MENTHYL SALICYLATE
  6. SENNA LAXATIVE [Concomitant]
     Active Substance: SENNOSIDES
  7. CALCITRIOL. [Concomitant]
     Active Substance: CALCITRIOL
  8. LENVIMA [Suspect]
     Active Substance: LENVATINIB
     Route: 048
     Dates: start: 2018, end: 2018
  9. SYNTHROID [Concomitant]
     Active Substance: LEVOTHYROXINE SODIUM
  10. SILDENAFIL CITRATE. [Concomitant]
     Active Substance: SILDENAFIL CITRATE
  11. VERAPAMIL ER [Concomitant]
     Active Substance: VERAPAMIL HYDROCHLORIDE
  12. BACLOFEN. [Concomitant]
     Active Substance: BACLOFEN
  13. PROCTOSOL [Concomitant]
  14. LEVOTHYROXINE. [Concomitant]
     Active Substance: LEVOTHYROXINE
  15. LENVIMA [Suspect]
     Active Substance: LENVATINIB
     Indication: RENAL CANCER
     Route: 048
     Dates: start: 20180312, end: 2018
  16. AFINITOR [Suspect]
     Active Substance: EVEROLIMUS
     Indication: PRODUCT USED FOR UNKNOWN INDICATION
     Dosage: DOSE AND FREQUENCY UNKNOWN
     Route: 048
     Dates: end: 2019
  17. AFINITOR [Suspect]
     Active Substance: EVEROLIMUS
     Dosage: DOSE AND FREQUENCY UNKNOWN
     Route: 048
     Dates: start: 2019, end: 2019
  18. CALCIUM [Concomitant]
     Active Substance: CALCIUM
  19. VOTRIENT [Concomitant]
     Active Substance: PAZOPANIB HYDROCHLORIDE
  20. LYRICA [Concomitant]
     Active Substance: PREGABALIN
  21. LOSARTAN. [Concomitant]
     Active Substance: LOSARTAN
  22. LENVIMA [Suspect]
     Active Substance: LENVATINIB
     Route: 048
     Dates: start: 2018
  23. ONDANSETRON HCL [Concomitant]
     Active Substance: ONDANSETRON HYDROCHLORIDE
  24. OXYCONTIN [Concomitant]
     Active Substance: OXYCODONE HYDROCHLORIDE
  25. TRAMADOL. [Concomitant]
     Active Substance: TRAMADOL
  26. ATORVASTATIN [Concomitant]
     Active Substance: ATORVASTATIN
  27. VITAMIN D3 [Concomitant]
     Active Substance: CHOLECALCIFEROL
  28. OXYCODONE [Concomitant]
     Active Substance: OXYCODONE
  29. GABAPENTIN. [Concomitant]
     Active Substance: GABAPENTIN
  30. MORPHINE SULFATE ER [Concomitant]
     Active Substance: MORPHINE SULFATE
  31. FUROSEMIDE. [Concomitant]
     Active Substance: FUROSEMIDE

REACTIONS (13)
  - Blood pressure increased [Not Recovered/Not Resolved]
  - Taste disorder [Unknown]
  - Tumour pain [Not Recovered/Not Resolved]
  - Gastrointestinal obstruction [Unknown]
  - Fatigue [Unknown]
  - Nausea [Unknown]
  - Abdominal pain upper [Unknown]
  - Decreased appetite [Recovering/Resolving]
  - Pain in extremity [Unknown]
  - Abdominal discomfort [Recovering/Resolving]
  - Diarrhoea [Unknown]
  - Weight decreased [Unknown]
  - Vomiting [Unknown]

NARRATIVE: CASE EVENT DATE: 2018
